FAERS Safety Report 5282071-6 (Version None)
Quarter: 2007Q1

REPORT INFORMATION
  Report Type: 
  Country: None (occurrence: None)
  Receive Date: 20070330
  Receipt Date: 20070322
  Transmission Date: 20070707
  Serious: Yes (Hospitalization)
  Sender: FDA-Public Use
  Company Number: CL-ABBOTT-07P-034-0363052-00

PATIENT
  Sex: Male
  Weight: 54 kg

DRUGS (2)
  1. KALETRA [Suspect]
     Indication: HIV INFECTION
     Dosage: 800MG / 200MG
     Route: 048
     Dates: start: 20070228, end: 20070322
  2. LAMIVUDINE/ABACAVIR [Concomitant]
     Indication: HIV INFECTION
     Dosage: 600/300
     Route: 048
     Dates: start: 20070228, end: 20070322

REACTIONS (3)
  - DEHYDRATION [None]
  - DIARRHOEA [None]
  - WEIGHT DECREASED [None]
